FAERS Safety Report 16567601 (Version 4)
Quarter: 2020Q2

REPORT INFORMATION
  Report Type: Spontaneous
  Country: US (occurrence: US)
  Receive Date: 20190712
  Receipt Date: 20200417
  Transmission Date: 20200713
  Serious: No
  Sender: FDA-Public Use
  Company Number: US-009507513-1907USA002491

PATIENT
  Age: 15 Year
  Sex: Female
  Weight: 95.24 kg

DRUGS (5)
  1. ADDERALL XR [Concomitant]
     Active Substance: AMPHETAMINE ASPARTATE\AMPHETAMINE SULFATE\DEXTROAMPHETAMINE SACCHARATE\DEXTROAMPHETAMINE SULFATE
     Dosage: 30 MILLIGRAM, QD
     Route: 048
  2. ACYCLOVIR. [Concomitant]
     Active Substance: ACYCLOVIR
     Indication: GENITAL HERPES
     Dosage: 800 MILLIGRAM, BID
     Route: 048
     Dates: start: 20190606, end: 20190611
  3. RANITIDINE. [Concomitant]
     Active Substance: RANITIDINE
     Dosage: 75 MILLIGRAM, QD
     Route: 048
  4. NEXPLANON [Suspect]
     Active Substance: ETONOGESTREL
     Indication: CONTRACEPTION
     Dosage: 68 MILLIGRAM IMPLANT
     Route: 059
     Dates: start: 20190606, end: 20190703
  5. SINGULAIR [Suspect]
     Active Substance: MONTELUKAST SODIUM
     Dosage: 5 MILLIGRAM DAILY
     Route: 048

REACTIONS (2)
  - Inappropriate schedule of product administration [Unknown]
  - Exposure during pregnancy [Unknown]

NARRATIVE: CASE EVENT DATE: 20190606
